FAERS Safety Report 6894401-X (Version None)
Quarter: 2010Q3

REPORT INFORMATION
  Report Type: 
  Country: None (occurrence: None)
  Receive Date: 20100802
  Receipt Date: 20100720
  Transmission Date: 20110219
  Serious: Yes (Hospitalization)
  Sender: FDA-Public Use
  Company Number: US-ELI_LILLY_AND_COMPANY-US201007005245

PATIENT
  Sex: Female

DRUGS (11)
  1. GEMCITABINE HCL [Suspect]
     Indication: BLADDER CANCER
     Dosage: 1360 MG, OTHER
     Route: 042
     Dates: start: 20100526
  2. PACLITAXEL [Suspect]
     Indication: BLADDER CANCER
     Dosage: 442 MG, UNK
     Dates: start: 20100526
  3. CARBOPLATIN [Suspect]
     Indication: BLADDER CANCER
     Dosage: 320 MG, OTHER
     Route: 042
     Dates: start: 20100526
  4. GENTAMICIN [Concomitant]
     Dates: start: 20100707
  5. LEVOTHYROXINE SODIUM [Concomitant]
  6. SIMVASTATIN [Concomitant]
  7. ENALAPRIL [Concomitant]
  8. DIGOXIN [Concomitant]
     Dosage: 0.25 MG, UNK
     Dates: start: 20090515
  9. ALENDRONATE SODIUM [Concomitant]
     Dosage: 70 MG, UNK
     Route: 048
     Dates: start: 20090515
  10. AMLODIPINE [Concomitant]
  11. BUMETANIDE [Concomitant]

REACTIONS (5)
  - ANAEMIA [None]
  - BLOOD URINE PRESENT [None]
  - DIZZINESS [None]
  - INFECTION [None]
  - KLEBSIELLA TEST POSITIVE [None]
